FAERS Safety Report 10313403 (Version 4)
Quarter: 2014Q4

REPORT INFORMATION
  Report Type: Spontaneous
  Country: US (occurrence: US)
  Receive Date: 20140718
  Receipt Date: 20141231
  Transmission Date: 20150528
  Serious: Yes (Hospitalization)
  Sender: FDA-Public Use
  Company Number: US-BAYER-2014-107067

PATIENT
  Age: 20 Year
  Sex: Female
  Weight: 48.73 kg

DRUGS (1)
  1. MIRENA [Suspect]
     Active Substance: LEVONORGESTREL
     Indication: CONTRACEPTION
     Dosage: 20 MCG/24HR, CONT
     Route: 015
     Dates: start: 20101103, end: 20130228

REACTIONS (9)
  - Post procedural discomfort [None]
  - Medical device pain [Not Recovered/Not Resolved]
  - Pelvic fibrosis [None]
  - Emotional distress [None]
  - Injury [Not Recovered/Not Resolved]
  - Anxiety [None]
  - Embedded device [Not Recovered/Not Resolved]
  - Pain [Not Recovered/Not Resolved]
  - Procedural pain [Not Recovered/Not Resolved]

NARRATIVE: CASE EVENT DATE: 201301
